FAERS Safety Report 24357366 (Version 1)
Quarter: 2024Q3

REPORT INFORMATION
  Report Type: Spontaneous
  Country: US (occurrence: US)
  Receive Date: 20240924
  Receipt Date: 20240924
  Transmission Date: 20241016
  Serious: Yes (Hospitalization)
  Sender: LUNDBECK
  Company Number: US-LUNDBECK-DKLU4004436

PATIENT

DRUGS (2)
  1. NORTHERA [Suspect]
     Active Substance: DROXIDOPA
     Indication: Parkinson^s disease
     Dosage: 600 MILLIGRAM
     Route: 048
     Dates: start: 202402
  2. NORTHERA [Suspect]
     Active Substance: DROXIDOPA
     Indication: Orthostatic hypotension

REACTIONS (1)
  - Loss of consciousness [Unknown]
